FAERS Safety Report 14738183 (Version 1)
Quarter: 2018Q2

REPORT INFORMATION
  Report Type: Spontaneous
  Country: US (occurrence: US)
  Receive Date: 20180409
  Receipt Date: 20180409
  Transmission Date: 20180711
  Serious: No
  Sender: FDA-Public Use
  Company Number: US-BAYER-2018-060805

PATIENT
  Age: 74 Year
  Sex: Female
  Weight: 72.97 kg

DRUGS (2)
  1. PERCOCET [Concomitant]
     Active Substance: ACETAMINOPHEN\OXYCODONE HYDROCHLORIDE
  2. MIRALAX [Suspect]
     Active Substance: POLYETHYLENE GLYCOL 3350
     Indication: GASTROINTESTINAL DISORDER
     Dosage: 2 CAPFULS DAILY DOSE
     Route: 048
     Dates: start: 201802

REACTIONS (2)
  - Product use issue [Unknown]
  - Incorrect dose administered [Unknown]
